APPROVED DRUG PRODUCT: TRAZODONE HYDROCHLORIDE
Active Ingredient: TRAZODONE HYDROCHLORIDE
Strength: 100MG
Dosage Form/Route: TABLET;ORAL
Application: A071514 | Product #001
Applicant: ALVOGEN INC
Approved: Apr 18, 1988 | RLD: No | RS: No | Type: DISCN